FAERS Safety Report 9891458 (Version 1)
Quarter: 2014Q1

REPORT INFORMATION
  Report Type: Spontaneous
  Country: US (occurrence: None)
  Receive Date: 20140211
  Receipt Date: 20140211
  Transmission Date: 20141002
  Serious: Yes (Life-Threatening, Hospitalization)
  Sender: FDA-Public Use
  Company Number: None

PATIENT
  Age: 74 Year
  Sex: Male
  Weight: 79.5 kg

DRUGS (2)
  1. CISPLATIN [Suspect]
     Indication: BLADDER CANCER
     Route: 042
     Dates: start: 20130828, end: 20130914
  2. GEMCITABINE [Suspect]
     Route: 042
     Dates: start: 20130823, end: 20130829

REACTIONS (4)
  - Neutropenia [None]
  - Thrombocytopenia [None]
  - Sepsis [None]
  - Investigation [None]
